FAERS Safety Report 23521038 (Version 1)
Quarter: 2024Q1

REPORT INFORMATION
  Report Type: 
  Country: None (occurrence: None)
  Receive Date: 20240214
  Receipt Date: 20240214
  Transmission Date: 20240410
  Serious: No
  Sender: FDA-Public Use
  Company Number: None

PATIENT

DRUGS (3)
  1. BEVACIZUMAB [Suspect]
     Active Substance: BEVACIZUMAB
     Dosage: 345MILLIGRAMS (5MG/KG) 1 CYCLE AND LAST CYCLE 12/31/2023 WITHOUT ADJUSTMENT, LAST CYCLE 8 (12/27/202
     Dates: start: 20230417, end: 20231227
  2. DEXAMETHASONE [Suspect]
     Active Substance: DEXAMETHASONE
     Dosage: 8 MILLIGRAMS (8MG/TOTAL) LAST CYCLE 8 ON 12/27/2023
     Dates: start: 20230417, end: 20231227
  3. LONSURF [Suspect]
     Active Substance: TIPIRACIL HYDROCHLORIDE\TRIFLURIDINE
     Dosage: 50MG EVERY 12 HOURS
     Dates: start: 20231002, end: 20240117

REACTIONS (2)
  - Hyperbilirubinaemia [None]
  - Hepatitis [None]

NARRATIVE: CASE EVENT DATE: 20240117
